FAERS Safety Report 5096306-6 (Version None)
Quarter: 2006Q3

REPORT INFORMATION
  Report Type: 
  Country: None (occurrence: None)
  Receive Date: 20060830
  Receipt Date: 20060817
  Transmission Date: 20061208
  Serious: Yes (Hospitalization, Disabling)
  Sender: FDA-Public Use
  Company Number: JP_050306088

PATIENT
  Age: 56 Year
  Sex: Female
  Weight: 54.8 kg

DRUGS (7)
  1. ZYPREXA [Suspect]
     Indication: SCHIZOPHRENIA, UNDIFFERENTIATED TYPE
     Dosage: 15 MG, DAILY (1/D), ORAL
     Route: 048
     Dates: start: 20041102, end: 20050106
  2. ZOTEPINE (ZOTEPINE) [Concomitant]
  3. BIPERIDNE HYDROCHLORIDE (BIPERIDEN HYDROCHLOROID) [Concomitant]
  4. FLUNITRAZEPAM (FLUNITRAZEPAM) [Concomitant]
  5. OM [Concomitant]
  6. ALOSENN  /00476901/ [Concomitant]
  7. PANTOSIN (PANTETHINE) [Concomitant]

REACTIONS (3)
  - FRACTURE [None]
  - NEUROLEPTIC MALIGNANT SYNDROME [None]
  - SEROTONIN SYNDROME [None]
